FAERS Safety Report 23556860 (Version 1)
Quarter: 2024Q1

REPORT INFORMATION
  Report Type: Spontaneous
  Country: US (occurrence: US)
  Receive Date: 20240223
  Receipt Date: 20240223
  Transmission Date: 20240410
  Serious: Yes (Hospitalization, Other)
  Sender: FDA-Public Use
  Company Number: US-SUN PHARMACEUTICAL INDUSTRIES LTD-2024R1-432761

PATIENT
  Age: 39 Year
  Sex: Male

DRUGS (5)
  1. MIRTAZAPINE [Suspect]
     Active Substance: MIRTAZAPINE
     Indication: Pain
     Dosage: UNK
     Route: 065
  2. METHADONE [Suspect]
     Active Substance: METHADONE HYDROCHLORIDE
     Indication: Pain
     Dosage: UNK
     Route: 065
  3. OXYCODONE [Suspect]
     Active Substance: OXYCODONE\OXYCODONE HYDROCHLORIDE
     Indication: Pain
     Dosage: UNK
     Route: 065
  4. PRAZOSIN [Suspect]
     Active Substance: PRAZOSIN
     Indication: Pain
     Dosage: UNK
     Route: 065
  5. QUETIAPINE [Suspect]
     Active Substance: QUETIAPINE
     Indication: Pain
     Dosage: UNK
     Route: 065

REACTIONS (1)
  - Therapy non-responder [Unknown]
